FAERS Safety Report 10543375 (Version 2)
Quarter: 2015Q1

REPORT INFORMATION
  Report Type: Spontaneous
  Country: DE (occurrence: DE)
  Receive Date: 20141027
  Receipt Date: 20150114
  Transmission Date: 20150720
  Serious: Yes (Life-Threatening, Hospitalization, Other)
  Sender: FDA-Public Use
  Company Number: DE-GLAXOSMITHKLINE-DE2014GSK008643

PATIENT
  Sex: Female

DRUGS (16)
  1. MIRTAZAPIN [Concomitant]
     Active Substance: MIRTAZAPINE
  2. LORZAAR [Concomitant]
     Active Substance: LOSARTAN
  3. SIMVA [Concomitant]
  4. NORSPAN [Concomitant]
     Active Substance: BUPRENORPHINE
  5. MYCOPHENOLATE MOFETIL. [Suspect]
     Active Substance: MYCOPHENOLATE MOFETIL
     Dosage: UNK
     Dates: start: 20080301, end: 20140311
  6. BENLYSTA [Suspect]
     Active Substance: BELIMUMAB
     Indication: SYSTEMIC LUPUS ERYTHEMATOSUS
     Dosage: UNK
     Dates: start: 2012
  7. LASIX [Concomitant]
     Active Substance: FUROSEMIDE
  8. SPASMEX [Concomitant]
     Active Substance: TROSPIUM CHLORIDE
     Dosage: 15 MG, UNK
  9. DECORTIN [Concomitant]
     Active Substance: PREDNISONE
  10. BISOPROLOL [Concomitant]
     Active Substance: BISOPROLOL
  11. ARANESP [Concomitant]
     Active Substance: DARBEPOETIN ALFA
     Dosage: UNK
     Route: 058
  12. PREDNISON [Suspect]
     Active Substance: PREDNISONE
     Dosage: UNK
  13. L-THYROXIN [Concomitant]
     Active Substance: LEVOTHYROXINE SODIUM
  14. NOVALGIN [Concomitant]
     Active Substance: METAMIZOLE SODIUM
     Dosage: 25 MG, TID
  15. PANTOZOL [Concomitant]
     Active Substance: PANTOPRAZOLE SODIUM
  16. IDEOS [Concomitant]
     Active Substance: CALCIUM CARBONATE\CHOLECALCIFEROL

REACTIONS (1)
  - Renal cell carcinoma [Unknown]
